FAERS Safety Report 6374549-9 (Version None)
Quarter: 2009Q3

REPORT INFORMATION
  Report Type: 
  Country: None (occurrence: None)
  Receive Date: 20090924
  Receipt Date: 20090716
  Transmission Date: 20100115
  Serious: No
  Sender: FDA-Public Use
  Company Number: US-ASTRAZENECA-2009UW20262

PATIENT
  Sex: Female

DRUGS (1)
  1. SEROQUEL [Suspect]
     Route: 048

REACTIONS (5)
  - HOT FLUSH [None]
  - LETHARGY [None]
  - NIGHTMARE [None]
  - PALPITATIONS [None]
  - WEIGHT INCREASED [None]
